FAERS Safety Report 11747658 (Version 3)
Quarter: 2016Q1

REPORT INFORMATION
  Report Type: Spontaneous
  Country: US (occurrence: US)
  Receive Date: 20151117
  Receipt Date: 20160113
  Transmission Date: 20160525
  Serious: Yes (Hospitalization, Other)
  Sender: FDA-Public Use
  Company Number: US-ELI_LILLY_AND_COMPANY-US201511003239

PATIENT
  Sex: Female

DRUGS (6)
  1. HUMALOG MIX75/25 [Suspect]
     Active Substance: INSULIN LISPRO
     Dosage: 78 U, EACH EVENING
     Route: 065
     Dates: start: 20150913
  2. HUMALOG MIX75/25 [Suspect]
     Active Substance: INSULIN LISPRO
     Indication: TYPE 2 DIABETES MELLITUS
     Dosage: 114 U, EACH MORNING
     Route: 065
     Dates: start: 20150913
  3. HUMALOG MIX75/25 [Suspect]
     Active Substance: INSULIN LISPRO
     Dosage: 114 U, EACH MORNING
     Route: 065
     Dates: end: 20151110
  4. LOPRESSOR [Suspect]
     Active Substance: METOPROLOL TARTRATE
     Indication: CARDIAC DISORDER
     Dosage: 100 MG, UNKNOWN
     Route: 065
  5. HUMALOG MIX75/25 [Suspect]
     Active Substance: INSULIN LISPRO
     Dosage: 78 U, EACH EVENING
     Route: 065
  6. HUMULIN 70/30 [Suspect]
     Active Substance: INSULIN HUMAN
     Indication: TYPE 2 DIABETES MELLITUS
     Dosage: UNK, UNKNOWN
     Route: 065
     Dates: start: 2010, end: 20151215

REACTIONS (13)
  - Blood glucose increased [Not Recovered/Not Resolved]
  - Nausea [Unknown]
  - Sinusitis [Unknown]
  - Cyst rupture [Recovered/Resolved]
  - Malaise [Unknown]
  - Migraine [Not Recovered/Not Resolved]
  - Blood glucose decreased [Recovered/Resolved]
  - Bacterial infection [Recovered/Resolved]
  - Dry mouth [Unknown]
  - Malaise [Recovered/Resolved]
  - Scar [Recovering/Resolving]
  - Allergy to chemicals [Unknown]
  - Drug hypersensitivity [Recovering/Resolving]

NARRATIVE: CASE EVENT DATE: 201305
